FAERS Safety Report 8030804-8 (Version None)
Quarter: 2012Q1

REPORT INFORMATION
  Report Type: 
  Country: None (occurrence: None)
  Receive Date: 20120105
  Receipt Date: 20111221
  Transmission Date: 20120608
  Serious: Yes (Other)
  Sender: FDA-Public Use
  Company Number: 1000026527

PATIENT
  Age: 53 Year
  Sex: Female

DRUGS (1)
  1. NEBIVOLOL HCL [Suspect]
     Indication: HYPERTENSION
     Dosage: 5 MG (5 MG,1 IN 1 D),ORAL
     Route: 048
     Dates: start: 20111122, end: 20111128

REACTIONS (2)
  - ASTHENIA [None]
  - ARTHRALGIA [None]
